FAERS Safety Report 17595274 (Version 1)
Quarter: 2020Q1

REPORT INFORMATION
  Report Type: Spontaneous
  Country: BE (occurrence: BE)
  Receive Date: 20200328
  Receipt Date: 20200328
  Transmission Date: 20200409
  Serious: Yes (Other)
  Sender: FDA-Public Use
  Company Number: NVSC2020BE083093

PATIENT
  Sex: Female

DRUGS (2)
  1. COSENTYX [Suspect]
     Active Substance: SECUKINUMAB
     Dosage: 150 MG, QMO
     Route: 065
  2. COSENTYX [Suspect]
     Active Substance: SECUKINUMAB
     Indication: PSORIATIC ARTHROPATHY
     Dosage: 150 MG, QW (5X (BUILD-UP SCHEME))
     Route: 065
     Dates: start: 20200116, end: 20200213

REACTIONS (1)
  - Anosmia [Unknown]

NARRATIVE: CASE EVENT DATE: 202003
